FAERS Safety Report 9578247 (Version 1)
Quarter: 2013Q4

REPORT INFORMATION
  Report Type: Spontaneous
  Country: US (occurrence: US)
  Receive Date: 20131001
  Receipt Date: 20131001
  Transmission Date: 20140711
  Serious: No
  Sender: FDA-Public Use
  Company Number: US-AMGEN-USASP2013011832

PATIENT
  Age: 50 Year
  Sex: Female
  Weight: 72.56 kg

DRUGS (13)
  1. ENBREL [Suspect]
     Indication: PSORIATIC ARTHROPATHY
     Dosage: 50 MG, 2 TIMES/WK
     Route: 058
  2. ENBREL [Suspect]
     Indication: PSORIASIS
  3. TOPROL [Concomitant]
     Dosage: 25 MG, UNK
  4. TRAZODONE [Concomitant]
     Dosage: 100 MG, UNK
  5. ADVAIR [Concomitant]
     Dosage: 250/50, UNK
  6. SINGULAIR [Concomitant]
     Dosage: 10 MG, UNK
  7. FLONASE [Concomitant]
     Dosage: 0.05 UNK, UNK
  8. PRILOSEC                           /00661201/ [Concomitant]
     Dosage: 20 MG, UNK
  9. ASPIRIN [Concomitant]
     Dosage: 81 MG, UNK
  10. ALBUTEROL                          /00139501/ [Concomitant]
     Dosage: 90 MUG, UNK
  11. MULTIVITAMINS, PLAIN [Concomitant]
     Dosage: UNK
  12. VITAMIN D                          /00107901/ [Concomitant]
     Dosage: 1000 UNIT, UNK
  13. CLOBETASOL E [Concomitant]
     Dosage: 0.05 UNK, UNK

REACTIONS (1)
  - Injection site pain [Unknown]
